FAERS Safety Report 6463175-9 (Version None)
Quarter: 2009Q4

REPORT INFORMATION
  Report Type: 
  Country: None (occurrence: None)
  Receive Date: 20091123
  Receipt Date: 20091109
  Transmission Date: 20100525
  Serious: Yes (Hospitalization, Other)
  Sender: FDA-Public Use
  Company Number: 2009AC000381

PATIENT
  Age: 76 Year
  Sex: Female

DRUGS (21)
  1. DIGOXIN [Suspect]
     Dosage: 0.125 MG;QD;PO
     Route: 048
  2. PROPOXYPHENE NAPSYLATE AND ACETAMINOPHEN [Concomitant]
  3. PREVACID [Concomitant]
  4. ALPRAZOLAM [Concomitant]
  5. PROTONIX [Concomitant]
  6. MECLIZINE [Concomitant]
  7. HYDROCODONE [Concomitant]
  8. PROMETHAZINE [Concomitant]
  9. ZITHROMAX [Concomitant]
  10. PACERONE [Concomitant]
  11. AMIODARONE HCL [Concomitant]
  12. WARFARIN SODIUM [Concomitant]
  13. VICODIN [Concomitant]
  14. NAPROXEN [Concomitant]
  15. IBUPROFEN [Concomitant]
  16. PANTOPRAZOLE [Concomitant]
  17. PENICILLIN VK [Concomitant]
  18. PROTONIX [Concomitant]
  19. ASPIRIN [Concomitant]
  20. CALCIUM [Concomitant]
  21. VITAMIN B-12 [Concomitant]

REACTIONS (9)
  - ATRIAL FIBRILLATION [None]
  - BURSITIS [None]
  - CHEST PAIN [None]
  - CORONARY ARTERY DISEASE [None]
  - DYSPNOEA [None]
  - GASTROOESOPHAGEAL REFLUX DISEASE [None]
  - MULTIPLE INJURIES [None]
  - PEPTIC ULCER [None]
  - THALASSAEMIA [None]
